FAERS Safety Report 8036263-3 (Version None)
Quarter: 2012Q1

REPORT INFORMATION
  Report Type: 
  Country: None (occurrence: None)
  Receive Date: 20120111
  Receipt Date: 20120104
  Transmission Date: 20120608
  Serious: Yes (Hospitalization, Other)
  Sender: FDA-Public Use
  Company Number: PHHY2012FR001535

PATIENT
  Age: 71 Year
  Sex: Female

DRUGS (8)
  1. PREVISCAN [Suspect]
     Dosage: 0.5 MG, DAILY
     Route: 048
     Dates: start: 20111104
  2. ATENOLOL [Concomitant]
     Dosage: 50 MG, DAILY
  3. AMIODARONE HCL [Concomitant]
     Dosage: 120 MG, DAILY
  4. POTASSIUM CHLORIDE [Concomitant]
     Dosage: 600 MG, DAILY
  5. PRAVASTATIN [Concomitant]
     Dosage: 20 MG, DAILY
  6. ACETAMINOPHEN [Concomitant]
     Dosage: 500 MG, DAILY
  7. PREVISCAN [Suspect]
     Dosage: 0.25 MG, DAILY
  8. VALSARTAN  AND HYDROCHLOROTHIAZIDE [Suspect]
     Dosage: 80 MG VALS/12.5 MG HCT, UNK
     Route: 048
     Dates: end: 20111029

REACTIONS (4)
  - RENAL FAILURE ACUTE [None]
  - HAEMATURIA [None]
  - HAEMATOMA [None]
  - OVERDOSE [None]
